FAERS Safety Report 6046769-4 (Version None)
Quarter: 2009Q1

REPORT INFORMATION
  Report Type: 
  Country: None (occurrence: None)
  Receive Date: 20090122
  Receipt Date: 20090114
  Transmission Date: 20090719
  Serious: Yes (Other)
  Sender: FDA-Public Use
  Company Number: US-ELI_LILLY_AND_COMPANY-US200901002377

PATIENT
  Sex: Female

DRUGS (3)
  1. HUMALOG [Suspect]
     Indication: DIABETES MELLITUS
     Dates: start: 19980401
  2. HUMULIN N [Suspect]
     Indication: DIABETES MELLITUS
     Dates: start: 19980401
  3. LEXAPRO [Concomitant]

REACTIONS (11)
  - AMNESIA [None]
  - BLOOD GLUCOSE DECREASED [None]
  - BLOOD GLUCOSE INCREASED [None]
  - CONFUSIONAL STATE [None]
  - FRUSTRATION [None]
  - HEADACHE [None]
  - MALAISE [None]
  - NASOPHARYNGITIS [None]
  - ROAD TRAFFIC ACCIDENT [None]
  - SINUSITIS [None]
  - THERAPEUTIC RESPONSE UNEXPECTED [None]
